FAERS Safety Report 4537142-6 (Version None)
Quarter: 2004Q4

REPORT INFORMATION
  Report Type: 
  Country: None (occurrence: None)
  Receive Date: 20041223
  Receipt Date: 20040909
  Transmission Date: 20050328
  Serious: Yes (Other)
  Sender: FDA-Public Use
  Company Number: PHEH2004US09709

PATIENT
  Age: 3 Year
  Sex: Female

DRUGS (3)
  1. TRILEPTAL [Suspect]
     Indication: CONVULSION
     Dosage: 45 MG, BID
     Route: 048
     Dates: start: 20030101
  2. KEPPRA [Concomitant]
     Indication: CONVULSION
     Dates: start: 20040801
  3. VIGABATRIN [Concomitant]
     Indication: INFANTILE SPASMS
     Dosage: 750 MG, BID
     Dates: start: 20011227

REACTIONS (5)
  - AORTIC DILATATION [None]
  - CONDUCTION DISORDER [None]
  - MITRAL VALVE INCOMPETENCE [None]
  - SUPRAVENTRICULAR EXTRASYSTOLES [None]
  - VENTRICULAR EXTRASYSTOLES [None]
